FAERS Safety Report 18473098 (Version 1)
Quarter: 2020Q4

REPORT INFORMATION
  Report Type: Report from Study
  Country: GB (occurrence: GB)
  Receive Date: 20201106
  Receipt Date: 20201106
  Transmission Date: 20210114
  Serious: Yes (Other)
  Sender: FDA-Public Use
  Company Number: GB-MYLANLABS-2020M1092863

PATIENT
  Age: 16 Year
  Sex: Female

DRUGS (5)
  1. ESTRADIOL/NORETHISTERONE [Suspect]
     Active Substance: ESTRADIOL\NORETHINDRONE
     Indication: SECONDARY HYPOGONADISM
     Route: 062
  2. DOLUTEGRAVIR [Suspect]
     Active Substance: DOLUTEGRAVIR
     Indication: PERINATAL HIV INFECTION
     Route: 065
  3. ABACAVIR. [Suspect]
     Active Substance: ABACAVIR
     Indication: PERINATAL HIV INFECTION
     Route: 065
  4. ETHINYLESTRADIOL [Concomitant]
     Active Substance: ETHINYL ESTRADIOL
     Indication: PUBERTAL FAILURE
     Route: 065
  5. LAMIVUDINE. [Suspect]
     Active Substance: LAMIVUDINE
     Indication: PERINATAL HIV INFECTION
     Route: 065

REACTIONS (5)
  - Infertility [Unknown]
  - Secondary hypogonadism [Unknown]
  - Pubertal failure [Recovering/Resolving]
  - Rash [Unknown]
  - Amenorrhoea [Unknown]
